FAERS Safety Report 7378055-4 (Version None)
Quarter: 2011Q1

REPORT INFORMATION
  Report Type: 
  Country: None (occurrence: None)
  Receive Date: 20110317
  Receipt Date: 20110228
  Transmission Date: 20110831
  Serious: Yes (Death)
  Sender: FDA-Public Use
  Company Number: JPI-P-013493

PATIENT
  Age: 58 Year
  Sex: Female

DRUGS (4)
  1. XYREM [Suspect]
     Indication: NARCOLEPSY
     Dosage: 9 GM (4.5 GM,2 IN 1 D),ORAL ; 7.5 GM (3.75 GM,2 IN 1 D),ORAL
     Route: 048
     Dates: start: 20030228
  2. XYREM [Suspect]
     Indication: INSOMNIA
     Dosage: 9 GM (4.5 GM,2 IN 1 D),ORAL ; 7.5 GM (3.75 GM,2 IN 1 D),ORAL
     Route: 048
     Dates: start: 20030228
  3. XYREM [Suspect]
     Indication: NARCOLEPSY
     Dosage: 9 GM (4.5 GM,2 IN 1 D),ORAL ; 7.5 GM (3.75 GM,2 IN 1 D),ORAL
     Route: 048
     Dates: start: 20100922, end: 20101231
  4. XYREM [Suspect]
     Indication: INSOMNIA
     Dosage: 9 GM (4.5 GM,2 IN 1 D),ORAL ; 7.5 GM (3.75 GM,2 IN 1 D),ORAL
     Route: 048
     Dates: start: 20100922, end: 20101231

REACTIONS (1)
  - HOSPITALISATION [None]
